FAERS Safety Report 9455684 (Version 1)
Quarter: 2013Q3

REPORT INFORMATION
  Report Type: Spontaneous
  Country: FR (occurrence: FR)
  Receive Date: 20130813
  Receipt Date: 20130813
  Transmission Date: 20140515
  Serious: Yes (Hospitalization)
  Sender: FDA-Public Use
  Company Number: FR-PFIZER INC-2013231053

PATIENT
  Age: 5 Year
  Sex: Female
  Weight: 32 kg

DRUGS (2)
  1. ADVIL ENFANTS ET NOURRISSONS [Suspect]
     Indication: PYREXIA
     Dosage: DOSE/WEIGHT, UP TO 4 TIMES DAILY
     Route: 048
     Dates: start: 20130604, end: 20130609
  2. CLAMOXYL [Suspect]
     Indication: TONSILLITIS
     Dosage: USUAL DOSAGE
     Route: 048
     Dates: start: 20130604, end: 20130609

REACTIONS (2)
  - Rash maculo-papular [Recovered/Resolved]
  - Face oedema [Recovered/Resolved]
